FAERS Safety Report 16084216 (Version 1)
Quarter: 2019Q2

REPORT INFORMATION
  Report Type: Spontaneous
  Country: US (occurrence: US)
  Receive Date: 20190316
  Receipt Date: 20190316
  Transmission Date: 20190711
  Serious: No
  Sender: FDA-Public Use
  Company Number: None

PATIENT
  Age: 36 Year
  Sex: Female
  Weight: 105.75 kg

DRUGS (11)
  1. TYLENOL [Concomitant]
     Active Substance: ACETAMINOPHEN
  2. AMITRIPTYLINE [Concomitant]
     Active Substance: AMITRIPTYLINE
  3. RIZATRIPTAN. [Concomitant]
     Active Substance: RIZATRIPTAN
  4. EXCEDRINE [Concomitant]
  5. OMAPRAZOLE [Concomitant]
     Active Substance: OMEPRAZOLE
  6. MODAFINIL. [Concomitant]
     Active Substance: MODAFINIL
  7. VITAMIN D2 [Concomitant]
     Active Substance: ERGOCALCIFEROL
  8. BIOTIN [Concomitant]
     Active Substance: BIOTIN
  9. SAXENDA [Suspect]
     Active Substance: LIRAGLUTIDE
     Indication: WEIGHT DECREASED
     Dosage: ?          QUANTITY:1 INJECTION(S);?
     Route: 058
     Dates: start: 20181105, end: 20190129
  10. B12 INJECTION [Concomitant]
  11. CETERIZINE [Concomitant]
     Active Substance: CETIRIZINE HYDROCHLORIDE

REACTIONS (4)
  - Diarrhoea [None]
  - Abdominal pain [None]
  - Depressed mood [None]
  - Libido decreased [None]

NARRATIVE: CASE EVENT DATE: 20181201
